FAERS Safety Report 13522319 (Version 1)
Quarter: 2017Q2

REPORT INFORMATION
  Report Type: Spontaneous
  Country: JP (occurrence: JP)
  Receive Date: 20170508
  Receipt Date: 20170508
  Transmission Date: 20170830
  Serious: Yes (Other)
  Sender: FDA-Public Use
  Company Number: JP-SA-2017SA082049

PATIENT
  Age: 60 Year
  Sex: Male

DRUGS (3)
  1. JEVTANA [Suspect]
     Active Substance: CABAZITAXEL
     Indication: HORMONE-REFRACTORY PROSTATE CANCER
     Route: 042
     Dates: start: 20170427, end: 20170427
  2. JEVTANA [Suspect]
     Active Substance: CABAZITAXEL
     Indication: HORMONE-REFRACTORY PROSTATE CANCER
     Route: 042
     Dates: start: 20170128, end: 20170128
  3. RANMARK [Concomitant]
     Active Substance: DENOSUMAB
     Indication: PROSTATE CANCER
     Route: 065

REACTIONS (2)
  - Pharyngeal oedema [Unknown]
  - Osteonecrosis of jaw [Unknown]
